FAERS Safety Report 4817128-4 (Version None)
Quarter: 2005Q4

REPORT INFORMATION
  Report Type: 
  Country: None (occurrence: None)
  Receive Date: 20051018
  Receipt Date: 20050818
  Transmission Date: 20060501
  Serious: Yes (Other)
  Sender: FDA-Public Use
  Company Number: PHEH2005US09257

PATIENT
  Age: 49 Year
  Sex: Male
  Weight: 102 kg

DRUGS (1)
  1. ZOMETA [Suspect]
     Dosage: 4 MG MONTHLY,
     Dates: start: 20041101, end: 20050701

REACTIONS (1)
  - OSTEONECROSIS [None]
